FAERS Safety Report 6714257-5 (Version None)
Quarter: 2010Q2

REPORT INFORMATION
  Report Type: 
  Country: None (occurrence: None)
  Receive Date: 20100506
  Receipt Date: 20090609
  Transmission Date: 20101027
  Serious: No
  Sender: FDA-Public Use
  Company Number: US-BAUSCH-2009BL002853

PATIENT
  Age: 50 Year
  Sex: Male
  Weight: 111 kg

DRUGS (2)
  1. LOTEMAX [Suspect]
     Indication: POSTOPERATIVE CARE
     Route: 047
     Dates: start: 20090604, end: 20090604
  2. COMBIGAN [Concomitant]
     Indication: INTRAOCULAR PRESSURE TEST
     Route: 047

REACTIONS (2)
  - EYE PAIN [None]
  - PHOTOPHOBIA [None]
